FAERS Safety Report 8691946 (Version 2)
Quarter: 2013Q4

REPORT INFORMATION
  Report Type: Report from Study
  Country: JP (occurrence: JP)
  Receive Date: 20120730
  Receipt Date: 20131107
  Transmission Date: 20140711
  Serious: Yes (Other)
  Sender: FDA-Public Use
  Company Number: JP-009507513-1207JPN009362

PATIENT
  Age: 70 Year
  Sex: Female
  Weight: 50 kg

DRUGS (7)
  1. PEGINTRON [Suspect]
     Indication: HEPATITIS C
     Dosage: 1.0MCG/KG
     Route: 058
     Dates: start: 20120509, end: 20120516
  2. REBETOL [Suspect]
     Indication: HEPATITIS C
     Route: 048
     Dates: start: 20120509, end: 20120521
  3. TELAVIC [Suspect]
     Indication: HEPATITIS C
     Route: 048
     Dates: start: 20120509, end: 20120518
  4. FLAVITAN [Concomitant]
     Route: 048
  5. MAGLAX [Concomitant]
     Route: 048
  6. BIOFERMIN (BACILLUS SUBTILIS (+) LACTOBACILLUS ACIDOPHILUS (+) STREPTO [Concomitant]
     Route: 048
  7. NORVASC [Concomitant]
     Route: 048

REACTIONS (2)
  - Renal impairment [Recovering/Resolving]
  - Anaemia [Unknown]
